FAERS Safety Report 13138553 (Version 1)
Quarter: 2017Q1

REPORT INFORMATION
  Report Type: Spontaneous
  Country: US (occurrence: US)
  Receive Date: 20170123
  Receipt Date: 20170123
  Transmission Date: 20170428
  Serious: No
  Sender: FDA-Public Use
  Company Number: None

PATIENT
  Age: 77 Year
  Sex: Male
  Weight: 70.31 kg

DRUGS (10)
  1. ONGLYZA [Concomitant]
     Active Substance: SAXAGLIPTIN HYDROCHLORIDE
  2. FREESTYLE LITE TEST IN VITRO STRIP [Concomitant]
  3. TRIAMCINOLONE ACETONIDE. [Concomitant]
     Active Substance: TRIAMCINOLONE ACETONIDE
  4. ULORIC [Concomitant]
     Active Substance: FEBUXOSTAT
  5. SYNVISC [Concomitant]
     Active Substance: HYALURONATE SODIUM
  6. TAMSULOSIN HCL [Concomitant]
     Active Substance: TAMSULOSIN
  7. ALLOPURINOL 300MG [Suspect]
     Active Substance: ALLOPURINOL
     Indication: GOUT
     Dosage: 1 TABLET A DAY ONCE DAILY
     Route: 048
     Dates: start: 20150101, end: 20161124
  8. FISH OIL [Concomitant]
     Active Substance: FISH OIL
  9. AMLODIPINE BESYLATE. [Concomitant]
     Active Substance: AMLODIPINE BESYLATE
  10. CLOBETASOL PROPIONATE. [Concomitant]
     Active Substance: CLOBETASOL PROPIONATE

REACTIONS (4)
  - Lichen planus [None]
  - Chapped lips [None]
  - Oral disorder [None]
  - Immune system disorder [None]

NARRATIVE: CASE EVENT DATE: 20151031
